FAERS Safety Report 16733730 (Version 5)
Quarter: 2019Q3

REPORT INFORMATION
  Report Type: Spontaneous
  Country: BE (occurrence: BE)
  Receive Date: 20190823
  Receipt Date: 20190925
  Transmission Date: 20191005
  Serious: Yes (Death, Other)
  Sender: FDA-Public Use
  Company Number: BE-009507513-1908BEL007781

PATIENT
  Age: 65 Year
  Sex: Female

DRUGS (8)
  1. NEFOPAM [Suspect]
     Active Substance: NEFOPAM
     Dosage: 30 MILLIGRAM/ DAY
     Route: 048
  2. AMITRIPTYLINE HYDROCHLORIDE. [Suspect]
     Active Substance: AMITRIPTYLINE HYDROCHLORIDE
     Dosage: 75 MILLIGRAM/ DAY
  3. TRAMADOL HYDROCHLORIDE. [Suspect]
     Active Substance: TRAMADOL HYDROCHLORIDE
     Dosage: 300 MILLIGRAM/ DAY
  4. NEFOPAM [Suspect]
     Active Substance: NEFOPAM
     Dosage: 120 MILLIGRAM/ DAY
     Route: 048
  5. ARIPIPRAZOLE. [Suspect]
     Active Substance: ARIPIPRAZOLE
     Dosage: 15 MILLIGRAM/ DAY
  6. BUPROPION. [Suspect]
     Active Substance: BUPROPION
     Dosage: 300 MILLIGRAM/ DAY
  7. AMISULPRIDE [Suspect]
     Active Substance: AMISULPRIDE
     Dosage: 50 MILLIGRAM/ DAY
  8. MIRTAZAPINE. [Suspect]
     Active Substance: MIRTAZAPINE
     Dosage: 15 MILLIGRAM/ DAY
     Route: 048

REACTIONS (2)
  - Shock [Fatal]
  - Serotonin syndrome [Fatal]
